FAERS Safety Report 22211702 (Version 3)
Quarter: 2023Q2

REPORT INFORMATION
  Report Type: Spontaneous
  Country: CA (occurrence: CA)
  Receive Date: 20230414
  Receipt Date: 20230627
  Transmission Date: 20230721
  Serious: Yes (Other)
  Sender: FDA-Public Use
  Company Number: CA-PFIZER INC-202300153890

PATIENT
  Age: 15 Year
  Sex: Female

DRUGS (7)
  1. SOMATROPIN [Suspect]
     Active Substance: SOMATROPIN
     Indication: Growth hormone deficiency
     Dosage: 1350 UG 7 TIMES PER WEEK
     Route: 058
     Dates: start: 20230307, end: 2023
  2. SOMATROPIN [Suspect]
     Active Substance: SOMATROPIN
     Dosage: 1 MG 7 TIMES PER WEEK
     Route: 058
     Dates: start: 2023
  3. SYNTHROID [Suspect]
     Active Substance: LEVOTHYROXINE SODIUM
     Dosage: 500 NG (HIGH DOSE)
  4. HUMATROPE [Concomitant]
     Active Substance: SOMATROPIN
     Dosage: UNK
  5. ESTRADIOL [Concomitant]
     Active Substance: ESTRADIOL
     Dosage: 1500 UG, 1X/DAY
  6. PREDNISONE [Concomitant]
     Active Substance: PREDNISONE
     Dosage: 4 MG (1.5 MG IN AM AND 2.5MG IN PM)
  7. PROGESTERONE [Concomitant]
     Active Substance: PROGESTERONE
     Dosage: 1 DF, 10DAYS/QMONTH

REACTIONS (8)
  - Hyperthyroidism [Recovered/Resolved]
  - Heart rate increased [Recovered/Resolved]
  - Decreased appetite [Recovered/Resolved]
  - Insomnia [Recovered/Resolved]
  - Nail bed disorder [Recovered/Resolved]
  - Alopecia [Recovered/Resolved]
  - Malaise [Recovered/Resolved]
  - Product prescribing error [Unknown]

NARRATIVE: CASE EVENT DATE: 20230101
